FAERS Safety Report 5428926-0 (Version None)
Quarter: 2007Q3

REPORT INFORMATION
  Report Type: 
  Country: None (occurrence: None)
  Receive Date: 20070829
  Receipt Date: 20070822
  Transmission Date: 20080115
  Serious: Yes (Other)
  Sender: FDA-Public Use
  Company Number: GB-JNJFOC-20070502692

PATIENT
  Age: 62 Year
  Sex: Male
  Weight: 65.32 kg

DRUGS (5)
  1. RISPERDAL CONSTA [Suspect]
  2. RISPERDAL CONSTA [Suspect]
     Indication: SCHIZOPHRENIA
  3. PARACETAMOL [Suspect]
  4. PARACETAMOL [Suspect]
     Indication: DRUG USE FOR UNKNOWN INDICATION
  5. CHLORPROMAZINE [Concomitant]
     Indication: PARKINSONISM

REACTIONS (4)
  - ANOREXIA [None]
  - OVERDOSE [None]
  - VOMITING [None]
  - WEIGHT DECREASED [None]
